FAERS Safety Report 7077318-X (Version None)
Quarter: 2010Q4

REPORT INFORMATION
  Report Type: 
  Country: None (occurrence: None)
  Receive Date: 20101029
  Receipt Date: 20101029
  Transmission Date: 20110411
  Serious: Yes (Hospitalization)
  Sender: FDA-Public Use
  Company Number: None

PATIENT
  Age: 14 Year
  Sex: Male
  Weight: 85 kg

DRUGS (1)
  1. SULFASALAZINE [Suspect]
     Indication: JUVENILE ARTHRITIS
     Dosage: 500MG BID PO
     Route: 048
     Dates: start: 20101005, end: 20101026

REACTIONS (6)
  - CONFUSIONAL STATE [None]
  - DISORIENTATION [None]
  - DYSARTHRIA [None]
  - HALLUCINATION, AUDITORY [None]
  - HEADACHE [None]
  - VOMITING [None]
